FAERS Safety Report 15337899 (Version 4)
Quarter: 2018Q4

REPORT INFORMATION
  Report Type: Report from Study
  Country: None (occurrence: FR)
  Receive Date: 20180831
  Receipt Date: 20181010
  Transmission Date: 20190204
  Serious: Yes (Hospitalization, Other)
  Sender: FDA-Public Use
  Company Number: FR-ABBVIE-18S-056-2450643-00

PATIENT
  Age: 82 Year
  Sex: Female

DRUGS (2)
  1. DUODOPA [Suspect]
     Active Substance: CARBIDOPA\LEVODOPA
     Indication: PARKINSON^S DISEASE
     Dosage: MD: 8ML, ED: 1ML, CFR (DAY): 4.9 ML/H 8AM TO 8PM, CFR (NIGHT): 2.5 ML/H 8PM TO 8AM
     Route: 050
     Dates: start: 20170116
  2. DUODOPA [Suspect]
     Active Substance: CARBIDOPA\LEVODOPA
     Dosage: MD: 8ML.ED: 0.3ML , CFR: 4.7 ML/H 24H/24
     Route: 050

REACTIONS (9)
  - Delusion [Unknown]
  - Amnesia [Unknown]
  - Fall [Unknown]
  - Incorrect route of product administration [Not Recovered/Not Resolved]
  - Device occlusion [Not Recovered/Not Resolved]
  - Fall [Not Recovered/Not Resolved]
  - Off label use [Unknown]
  - Chest discomfort [Not Recovered/Not Resolved]
  - Abdominal discomfort [Not Recovered/Not Resolved]

NARRATIVE: CASE EVENT DATE: 2018
